FAERS Safety Report 23152424 (Version 1)
Quarter: 2023Q4

REPORT INFORMATION
  Report Type: Spontaneous
  Country: US (occurrence: US)
  Receive Date: 20231107
  Receipt Date: 20231107
  Transmission Date: 20240110
  Serious: No
  Sender: FDA-Public Use
  Company Number: US-OPELLA-2023OHG011450

PATIENT
  Sex: Female

DRUGS (1)
  1. DULCOLAX CHEWY FRUIT BITES CHERRY BERRY [Suspect]
     Active Substance: MAGNESIUM HYDROXIDE
     Indication: Bowel movement irregularity
     Route: 065
     Dates: start: 20231009

REACTIONS (3)
  - Product administration error [Unknown]
  - Drug ineffective [Unknown]
  - No adverse event [Unknown]

NARRATIVE: CASE EVENT DATE: 20231009
